FAERS Safety Report 5952527-9 (Version None)
Quarter: 2008Q4

REPORT INFORMATION
  Report Type: 
  Country: None (occurrence: None)
  Receive Date: 20081113
  Receipt Date: 20081110
  Transmission Date: 20090506
  Serious: Yes (Death)
  Sender: FDA-Public Use
  Company Number: US-GILEAD-2008-0018928

PATIENT
  Sex: Male

DRUGS (11)
  1. LETAIRIS [Suspect]
     Indication: PULMONARY ARTERIAL HYPERTENSION
     Route: 048
     Dates: start: 20070803
  2. PREVACID [Concomitant]
  3. FUROSEMIDE [Concomitant]
  4. ALDACTONE [Concomitant]
  5. LEXAPRO [Concomitant]
  6. TYLENOL (CAPLET) [Concomitant]
  7. CENTRUM [Concomitant]
  8. ASPIRIN [Concomitant]
  9. ACCUPRIL [Concomitant]
  10. NIFEDIPINE [Concomitant]
  11. PLAVIX [Concomitant]

REACTIONS (1)
  - DEATH [None]
